FAERS Safety Report 5067275-X (Version None)
Quarter: 2006Q3

REPORT INFORMATION
  Report Type: 
  Country: None (occurrence: None)
  Receive Date: 20060801
  Receipt Date: 20060727
  Transmission Date: 20061208
  Serious: Yes (Other)
  Sender: FDA-Public Use
  Company Number: US-MERCK-0607USA05279

PATIENT
  Age: 65 Year
  Sex: Female

DRUGS (3)
  1. FOSAMAX [Suspect]
     Indication: OSTEOPOROSIS
     Route: 048
     Dates: start: 20020801, end: 20060401
  2. MEVACOR [Concomitant]
     Route: 048
  3. ALPRAZOLAM [Concomitant]
     Route: 065

REACTIONS (5)
  - BONE PAIN [None]
  - JAW DISORDER [None]
  - ORAL INFECTION [None]
  - TOOTH DISORDER [None]
  - TOOTH LOSS [None]
